FAERS Safety Report 7851354-5 (Version None)
Quarter: 2011Q4

REPORT INFORMATION
  Report Type: 
  Country: None (occurrence: None)
  Receive Date: 20111026
  Receipt Date: 20110907
  Transmission Date: 20120403
  Serious: No
  Sender: FDA-Public Use
  Company Number: US-BAYER-2011-089372

PATIENT
  Age: 22 Year
  Sex: Male
  Weight: 72.562 kg

DRUGS (1)
  1. ALEVE (CAPLET) [Suspect]
     Indication: PRODUCT USED FOR UNKNOWN INDICATION
     Dosage: 3 DF, ONCE, BOTTLE COUNT 50S
     Route: 048
     Dates: start: 20110907

REACTIONS (1)
  - NAUSEA [None]
